FAERS Safety Report 7581850-X (Version None)
Quarter: 2011Q2

REPORT INFORMATION
  Report Type: 
  Country: None (occurrence: None)
  Receive Date: 20110629
  Receipt Date: 20110617
  Transmission Date: 20111010
  Serious: Yes (Other)
  Sender: FDA-Public Use
  Company Number: US-BAYER-2011-053424

PATIENT
  Sex: Female

DRUGS (1)
  1. ASPIRIN [Suspect]
     Dosage: UNK
     Route: 048

REACTIONS (3)
  - SWELLING FACE [None]
  - HYPERSENSITIVITY [None]
  - DYSPNOEA [None]
